FAERS Safety Report 8063448-2 (Version None)
Quarter: 2011Q4

REPORT INFORMATION
  Report Type: 
  Country: None (occurrence: None)
  Receive Date: 20111220
  Receipt Date: 20101112
  Transmission Date: 20120403
  Serious: Yes (Other)
  Sender: FDA-Public Use
  Company Number: 2010005905

PATIENT
  Sex: Male
  Weight: 65.7716 kg

DRUGS (2)
  1. OXYCONTIN [Concomitant]
  2. FENTANYL CITRATE [Suspect]
     Indication: RHEUMATOID ARTHRITIS
     Dosage: (TID PRN), BU
     Route: 002

REACTIONS (1)
  - DENTAL CARIES [None]
